FAERS Safety Report 7266394-7 (Version None)
Quarter: 2011Q1

REPORT INFORMATION
  Report Type: 
  Country: None (occurrence: None)
  Receive Date: 20110131
  Receipt Date: 20110126
  Transmission Date: 20110831
  Serious: Yes (Other)
  Sender: FDA-Public Use
  Company Number: US-PFIZER INC-2011019063

PATIENT
  Sex: Male
  Weight: 66 kg

DRUGS (6)
  1. COTRIM [Concomitant]
     Dosage: 160 MG, UNK
  2. LYRICA [Suspect]
     Indication: CONVULSION
  3. HYDROCODONE [Concomitant]
     Dosage: UNK
  4. LEVETIRACETAM [Concomitant]
     Dosage: UNK
  5. ACETAMINOPHEN [Concomitant]
     Dosage: UNK
  6. LYRICA [Suspect]
     Indication: NEURALGIA
     Dosage: 50 MG, DAILY
     Route: 048

REACTIONS (1)
  - LIP AND/OR ORAL CAVITY CANCER [None]
